FAERS Safety Report 8376003 (Version 2)
Quarter: 2013Q1

REPORT INFORMATION
  Report Type: Report from Study
  Country: US (occurrence: US)
  Receive Date: 20120129
  Receipt Date: 20130129
  Transmission Date: 20140127
  Serious: No
  Sender: FDA-Public Use
  Company Number: US-ABBOTT-11P-163-0883839-00

PATIENT
  Age: 64 Year
  Sex: Male

DRUGS (10)
  1. HUMIRA 40 MG/0.8 ML PEN [Suspect]
     Indication: PSORIASIS
     Dates: start: 20111109
  2. OXYCONTIN [Concomitant]
     Indication: MARFAN^S SYNDROME
     Route: 048
  3. GABAPENTIN [Concomitant]
     Indication: MARFAN^S SYNDROME
     Route: 048
  4. COUMADIN [Concomitant]
     Indication: MARFAN^S SYNDROME
     Route: 048
  5. COZAAR [Concomitant]
     Indication: MARFAN^S SYNDROME
     Route: 048
  6. OXYBUTYNIN [Concomitant]
     Indication: POLLAKIURIA
  7. GEMFIBROZIL [Concomitant]
     Indication: BLOOD CHOLESTEROL
  8. GEMFIBROZIL [Concomitant]
     Indication: MARFAN^S SYNDROME
  9. METOPROLOL [Concomitant]
     Indication: MARFAN^S SYNDROME
     Dosage: OR TOPROL
  10. OTHER MEDICATIONS [Concomitant]
     Indication: PRODUCT USED FOR UNKNOWN INDICATION

REACTIONS (1)
  - Drug ineffective [Not Recovered/Not Resolved]
